FAERS Safety Report 25430675 (Version 2)
Quarter: 2025Q2

REPORT INFORMATION
  Report Type: Spontaneous
  Country: RU (occurrence: RU)
  Receive Date: 20250612
  Receipt Date: 20250630
  Transmission Date: 20250716
  Serious: No
  Sender: NOVARTIS
  Company Number: RU-002147023-NVSC2025RU093778

PATIENT
  Age: 28 Year
  Sex: Female

DRUGS (1)
  1. IMATINIB [Suspect]
     Active Substance: IMATINIB
     Indication: Product used for unknown indication
     Dosage: 400 MG, QD
     Route: 048
     Dates: start: 201908, end: 202006

REACTIONS (4)
  - Cytogenetic analysis abnormal [Unknown]
  - Leukocytosis [Unknown]
  - Thrombocytosis [Unknown]
  - Anaemia [Unknown]

NARRATIVE: CASE EVENT DATE: 20200601
